FAERS Safety Report 11898702 (Version 1)
Quarter: 2016Q1

REPORT INFORMATION
  Report Type: Spontaneous
  Country: US (occurrence: None)
  Receive Date: 20160107
  Receipt Date: 20160107
  Transmission Date: 20160526
  Serious: No
  Sender: FDA-Public Use
  Company Number: None

PATIENT
  Age: 56 Year
  Sex: Female

DRUGS (1)
  1. BOTOX [Suspect]
     Active Substance: ONABOTULINUMTOXINA
     Indication: SOMATIC DYSFUNCTION
     Dosage: 100 UNITS
     Route: 030
     Dates: start: 20141104

REACTIONS (4)
  - Drug effect decreased [None]
  - Product quality issue [None]
  - Injection site pain [None]
  - Pelvic discomfort [None]

NARRATIVE: CASE EVENT DATE: 20151014
